FAERS Safety Report 8055011-4 (Version None)
Quarter: 2012Q1

REPORT INFORMATION
  Report Type: 
  Country: None (occurrence: None)
  Receive Date: 20120119
  Receipt Date: 20120117
  Transmission Date: 20120608
  Serious: Yes (Life-Threatening)
  Sender: FDA-Public Use
  Company Number: IT-PFIZER INC-2012007031

PATIENT
  Age: 74 Year
  Sex: Male

DRUGS (3)
  1. PREDNISONE TAB [Concomitant]
     Dosage: 5 MG, UNK
     Route: 048
  2. LANSOPRAZOLE [Concomitant]
     Dosage: 30 MG, UNK
     Route: 048
  3. ESTRACYT [Suspect]
     Indication: PROSTATE CANCER METASTATIC
     Dosage: 140 MG 7 TIMES DAILY
     Route: 048
     Dates: start: 20111109, end: 20111226

REACTIONS (2)
  - PULMONARY EMBOLISM [None]
  - PULMONARY INFARCTION [None]
